FAERS Safety Report 8580607-0 (Version None)
Quarter: 2012Q3

REPORT INFORMATION
  Report Type: 
  Country: None (occurrence: None)
  Receive Date: 20120809
  Receipt Date: 20120803
  Transmission Date: 20120928
  Serious: Yes (Death, Life-Threatening, Other)
  Sender: FDA-Public Use
  Company Number: AR-AMGEN-KDC421312

PATIENT
  Age: 37 Year
  Sex: Male

DRUGS (1)
  1. CINACALCET HYDROCHLORIDE [Suspect]
     Indication: HYPERPARATHYROIDISM SECONDARY
     Dosage: UNK UNK, QD
     Route: 048
     Dates: start: 20070226, end: 20100216

REACTIONS (4)
  - TACHYPNOEA [None]
  - VOMITING [None]
  - SENSORY LOSS [None]
  - PANCREATIC CARCINOMA [None]
